FAERS Safety Report 7854618-4 (Version None)
Quarter: 2011Q3

REPORT INFORMATION
  Report Type: 
  Country: None (occurrence: None)
  Receive Date: 20110916
  Receipt Date: 20110418
  Transmission Date: 20111222
  Serious: Yes (Disabling)
  Sender: FDA-Public Use
  Company Number: 2011SP017485

PATIENT
  Age: 18 Year
  Sex: Female
  Weight: 58.9676 kg

DRUGS (1)
  1. IMPLANON [Suspect]
     Indication: CONTRACEPTION
     Dates: start: 20101118

REACTIONS (5)
  - INSOMNIA [None]
  - CHEST PAIN [None]
  - IMPLANT SITE PAIN [None]
  - BURNING SENSATION [None]
  - PAIN IN EXTREMITY [None]
